FAERS Safety Report 5210296-4 (Version None)
Quarter: 2007Q1

REPORT INFORMATION
  Report Type: 
  Country: None (occurrence: None)
  Receive Date: 20070111
  Receipt Date: 20070108
  Transmission Date: 20070707
  Serious: Yes (Hospitalization, Other)
  Sender: FDA-Public Use
  Company Number: FRWYE080309JAN07

PATIENT
  Age: 53 Year
  Sex: Female

DRUGS (4)
  1. ADVIL [Suspect]
     Indication: MIGRAINE WITHOUT AURA
     Dosage: 90 TABLETS TOTAL MONTHLY ORAL
     Route: 048
     Dates: end: 20060606
  2. LAMALINE (BELLADONNA EXTRACT/CAFFEINE/OPIUM TINCTURE/PARACETAMOL, , 0) [Suspect]
     Indication: MIGRAINE
     Dosage: 60 DOSES TOTAL MONTHLY ORAL
     Route: 048
     Dates: end: 20060606
  3. IMIGRANE (SUMATRIPTAN SUCCINATE) [Concomitant]
  4. ACETAMINOPHEN [Concomitant]

REACTIONS (1)
  - DRUG WITHDRAWAL SYNDROME [None]
